FAERS Safety Report 7702276-1 (Version None)
Quarter: 2011Q3

REPORT INFORMATION
  Report Type: 
  Country: None (occurrence: None)
  Receive Date: 20110822
  Receipt Date: 20110812
  Transmission Date: 20111222
  Serious: Yes (Hospitalization)
  Sender: FDA-Public Use
  Company Number: US-ASTRAZENECA-2011SE48630

PATIENT
  Age: 67 Year
  Sex: Male

DRUGS (2)
  1. OTHER MEDICATIONS [Concomitant]
  2. CRESTOR [Suspect]
     Route: 048
     Dates: start: 20110803

REACTIONS (1)
  - PAIN [None]
